FAERS Safety Report 10757922 (Version 1)
Quarter: 2015Q1

REPORT INFORMATION
  Report Type: Spontaneous
  Country: US (occurrence: None)
  Receive Date: 20150202
  Receipt Date: 20150202
  Transmission Date: 20150721
  Serious: No
  Sender: FDA-Public Use
  Company Number: None

PATIENT
  Age: 36 Year
  Sex: Female
  Weight: 115 kg

DRUGS (2)
  1. LINZESS [Suspect]
     Active Substance: LINACLOTIDE
     Indication: CONSTIPATION
     Dosage: TAKEN BY MOUTH
     Dates: start: 20150124, end: 20150129
  2. LINZESS [Suspect]
     Active Substance: LINACLOTIDE
     Indication: PAIN
     Dosage: TAKEN BY MOUTH
     Dates: start: 20150124, end: 20150129

REACTIONS (5)
  - Diarrhoea [None]
  - Nausea [None]
  - Flatulence [None]
  - Dyspepsia [None]
  - Abdominal pain upper [None]

NARRATIVE: CASE EVENT DATE: 20150129
